FAERS Safety Report 6179456-2 (Version None)
Quarter: 2009Q2

REPORT INFORMATION
  Report Type: 
  Country: None (occurrence: None)
  Receive Date: 20090505
  Receipt Date: 20090428
  Transmission Date: 20091009
  Serious: Yes (Hospitalization, Other)
  Sender: FDA-Public Use
  Company Number: JP-B.I. PHARMACEUTICALS,INC./RIDGEFIELD-2009-DE-03186GD

PATIENT
  Sex: Male

DRUGS (8)
  1. PERSANTINE [Suspect]
     Route: 048
  2. NAPROXEN [Suspect]
     Indication: IGA NEPHROPATHY
  3. LANSOPRAZOLE [Suspect]
     Route: 048
  4. S-1 [Suspect]
     Indication: GASTRIC CANCER
     Dosage: SCHEDULE: 6 CYCLES OF 50 MG, TWICE DAILY FOR 3 CONSECUTIVE WEEKS, FOLLOWED BY A 2-WEEK REST PERIOD
  5. CISPLATIN [Suspect]
     Indication: GASTRIC CANCER
     Route: 042
  6. CISPLATIN [Suspect]
     Dosage: 60MG
  7. GRANISETRON HYDROCHLORIDE [Suspect]
     Route: 048
  8. STEROIDS [Suspect]
     Route: 048

REACTIONS (10)
  - ABDOMINAL PAIN UPPER [None]
  - ANOREXIA [None]
  - ANURIA [None]
  - DIARRHOEA [None]
  - FATIGUE [None]
  - PANCYTOPENIA [None]
  - PYREXIA [None]
  - RENAL FAILURE ACUTE [None]
  - SOMNOLENCE [None]
  - STOMATITIS [None]
